FAERS Safety Report 5909830-8 (Version None)
Quarter: 2008Q4

REPORT INFORMATION
  Report Type: 
  Country: None (occurrence: None)
  Receive Date: 20081007
  Receipt Date: 20081006
  Transmission Date: 20090506
  Serious: Yes (Life-Threatening, Hospitalization)
  Sender: FDA-Public Use
  Company Number: FR-BRISTOL-MYERS SQUIBB COMPANY-14358790

PATIENT
  Age: 88 Year
  Sex: Male

DRUGS (4)
  1. COUMADIN [Suspect]
     Dosage: ON 23-JUL-2008,WARFARIN SODIUM 2 MG 1.5 TABLETS PER DAY.
     Route: 048
     Dates: start: 20080725
  2. CARDENSIEL [Suspect]
  3. LASIX [Suspect]
  4. TAHOR [Suspect]

REACTIONS (4)
  - DUODENAL ULCER [None]
  - DUODENAL ULCER HAEMORRHAGE [None]
  - HAEMOGLOBIN DECREASED [None]
  - INTERNATIONAL NORMALISED RATIO INCREASED [None]
